FAERS Safety Report 20238557 (Version 3)
Quarter: 2022Q1

REPORT INFORMATION
  Report Type: Spontaneous
  Country: GB (occurrence: GB)
  Receive Date: 20211228
  Receipt Date: 20220118
  Transmission Date: 20220423
  Serious: Yes (Other)
  Sender: FDA-Public Use
  Company Number: GB-BAYER-2021A275004

PATIENT
  Age: 57 Year
  Sex: Female

DRUGS (1)
  1. MIRENA [Suspect]
     Active Substance: LEVONORGESTREL
     Indication: Hormone replacement therapy
     Dosage: 20?G/DAY
     Route: 015
     Dates: start: 20160808, end: 20211129

REACTIONS (4)
  - Device breakage [Recovered/Resolved]
  - Device difficult to use [Recovered/Resolved]
  - Complication of device removal [Recovered/Resolved]
  - Device use issue [None]

NARRATIVE: CASE EVENT DATE: 20211129
